FAERS Safety Report 8041529-7 (Version None)
Quarter: 2012Q1

REPORT INFORMATION
  Report Type: 
  Country: None (occurrence: None)
  Receive Date: 20120112
  Receipt Date: 20120103
  Transmission Date: 20120608
  Serious: Yes (Hospitalization)
  Sender: FDA-Public Use
  Company Number: US-BAYER-2011-057069

PATIENT
  Age: 25 Year
  Sex: Female
  Weight: 63 kg

DRUGS (3)
  1. YAZ [Suspect]
     Indication: CONTRACEPTION
     Dosage: UNK
     Dates: start: 20070501, end: 20090701
  2. YAZ [Suspect]
     Indication: DYSMENORRHOEA
  3. YAZ [Suspect]

REACTIONS (6)
  - PULMONARY EMBOLISM [None]
  - PALPITATIONS [None]
  - INJURY [None]
  - CHEST PAIN [None]
  - ANXIETY [None]
  - FEAR [None]
